FAERS Safety Report 9625449 (Version 1)
Quarter: 2013Q4

REPORT INFORMATION
  Report Type: Spontaneous
  Country: US (occurrence: None)
  Receive Date: 20131015
  Receipt Date: 20131015
  Transmission Date: 20140711
  Serious: Yes (Life-Threatening)
  Sender: FDA-Public Use
  Company Number: None

PATIENT
  Age: 65 Year
  Sex: Male
  Weight: 91.7 kg

DRUGS (1)
  1. MAGNESIUM OXIDE [Suspect]
     Indication: HYPOMAGNESAEMIA
     Route: 048
     Dates: start: 20130702, end: 20130904

REACTIONS (2)
  - Diarrhoea [None]
  - Hypotension [None]
